FAERS Safety Report 18134704 (Version 2)
Quarter: 2020Q4

REPORT INFORMATION
  Report Type: Spontaneous
  Country: US (occurrence: US)
  Receive Date: 20200811
  Receipt Date: 20201203
  Transmission Date: 20210113
  Serious: No
  Sender: FDA-Public Use
  Company Number: US-SHIRE-US202025734

PATIENT
  Age: 48 Year
  Sex: Female

DRUGS (2)
  1. TAKHZYRO [Suspect]
     Active Substance: LANADELUMAB-FLYO
     Indication: HEREDITARY ANGIOEDEMA WITH NORMAL C1 ESTERASE INHIBITOR
     Dosage: 300 MILLIGRAM, 1X/2WKS
     Route: 050
     Dates: start: 20200522
  2. TAKHZYRO [Suspect]
     Active Substance: LANADELUMAB-FLYO
     Dosage: UNK, 2/WEEK
     Route: 065
     Dates: start: 202005, end: 202005

REACTIONS (3)
  - Hyperhidrosis [Recovered/Resolved]
  - Chest discomfort [Recovered/Resolved]
  - Heart rate increased [Recovered/Resolved]

NARRATIVE: CASE EVENT DATE: 202005
